FAERS Safety Report 6532656-1 (Version None)
Quarter: 2010Q1

REPORT INFORMATION
  Report Type: 
  Country: None (occurrence: None)
  Receive Date: 20100111
  Receipt Date: 20091207
  Transmission Date: 20100710
  Serious: Yes (Life-Threatening, Hospitalization, Other)
  Sender: FDA-Public Use
  Company Number: US-ELI_LILLY_AND_COMPANY-US200912001766

PATIENT
  Sex: Male

DRUGS (3)
  1. ZYPREXA [Suspect]
     Indication: AGITATION
     Dosage: 10 MG, UNK
     Route: 030
     Dates: start: 20091204, end: 20091204
  2. ZYPREXA [Suspect]
     Dosage: 1 D/F, UNK
     Route: 048
  3. HALDOL [Concomitant]
     Dosage: 1 D/F, UNK
     Route: 030

REACTIONS (5)
  - AGITATION [None]
  - CARDIAC DISORDER [None]
  - OFF LABEL USE [None]
  - RESPIRATORY ARREST [None]
  - TRANSIENT ISCHAEMIC ATTACK [None]
